FAERS Safety Report 11062338 (Version 1)
Quarter: 2015Q2

REPORT INFORMATION
  Report Type: Spontaneous
  Country: CA (occurrence: CA)
  Receive Date: 20150424
  Receipt Date: 20150424
  Transmission Date: 20150821
  Serious: Yes (Hospitalization, Other)
  Sender: FDA-Public Use
  Company Number: CA-NOVOPROD-440100

PATIENT
  Age: 47 Year
  Sex: Male

DRUGS (5)
  1. NIASTASE RT [Suspect]
     Active Substance: COAGULATION FACTOR VIIA RECOMBINANT HUMAN
     Dosage: 2 MG
     Route: 042
  2. NIASTASE RT [Suspect]
     Active Substance: COAGULATION FACTOR VIIA RECOMBINANT HUMAN
     Indication: HAEMOPHILIA
     Dosage: 1 MG (100 UG/KG )
     Route: 042
     Dates: start: 20150120
  3. NIASTASE RT [Suspect]
     Active Substance: COAGULATION FACTOR VIIA RECOMBINANT HUMAN
     Indication: KNEE ARTHROPLASTY
     Dosage: 2 MG
     Route: 042
  4. NIASTASE RT [Suspect]
     Active Substance: COAGULATION FACTOR VIIA RECOMBINANT HUMAN
     Dosage: 5 MG
     Route: 042
  5. NIASTASE RT [Suspect]
     Active Substance: COAGULATION FACTOR VIIA RECOMBINANT HUMAN
     Dosage: 5 MG
     Route: 042

REACTIONS (2)
  - Post procedural haematoma [Recovered/Resolved]
  - Drug ineffective [Unknown]

NARRATIVE: CASE EVENT DATE: 20150121
